FAERS Safety Report 12977082 (Version 1)
Quarter: 2016Q4

REPORT INFORMATION
  Report Type: Report from Study
  Country: None (occurrence: CA)
  Receive Date: 20161128
  Receipt Date: 20161128
  Transmission Date: 20170207
  Serious: Yes (Other)
  Sender: FDA-Public Use
  Company Number: CA-ABBVIE-16K-028-1788923-00

PATIENT
  Sex: Male

DRUGS (1)
  1. HUMIRA [Suspect]
     Active Substance: ADALIMUMAB
     Indication: CROHN^S DISEASE
     Route: 058

REACTIONS (4)
  - Crohn^s disease [Unknown]
  - Basal cell carcinoma [Recovered/Resolved]
  - Arthralgia [Not Recovered/Not Resolved]
  - Umbilical hernia [Unknown]

NARRATIVE: CASE EVENT DATE: 2010
